FAERS Safety Report 25663512 (Version 2)
Quarter: 2025Q3

REPORT INFORMATION
  Report Type: Report from Study
  Country: CA (occurrence: CA)
  Receive Date: 20250811
  Receipt Date: 20250905
  Transmission Date: 20251020
  Serious: Yes (Hospitalization, Other)
  Sender: ABBVIE
  Company Number: CA-ABBVIE-6406157

PATIENT
  Sex: Male

DRUGS (1)
  1. LUPRON [Suspect]
     Active Substance: LEUPROLIDE ACETATE
     Indication: Prostate cancer
     Dosage: FORM STRENGTH: 30 MG
     Route: 065
     Dates: start: 20240903

REACTIONS (5)
  - Acute pulmonary oedema [Unknown]
  - Dyspnoea [Unknown]
  - General physical health deterioration [Unknown]
  - Constipation [Unknown]
  - Pain [Unknown]
